FAERS Safety Report 7978398-7 (Version None)
Quarter: 2011Q4

REPORT INFORMATION
  Report Type: 
  Country: None (occurrence: None)
  Receive Date: 20111214
  Receipt Date: 20111202
  Transmission Date: 20120403
  Serious: Yes (Hospitalization, Other)
  Sender: FDA-Public Use
  Company Number: US-RB-030988-11

PATIENT
  Age: 23 Year
  Sex: Female

DRUGS (1)
  1. MUCINEX DM [Suspect]
     Indication: PRODUCT USED FOR UNKNOWN INDICATION
     Dosage: TOOK 14 TO 21 TABLETS IN ONE DOSE
     Route: 048
     Dates: start: 20111130

REACTIONS (7)
  - DYSARTHRIA [None]
  - ACCIDENTAL OVERDOSE [None]
  - NAUSEA [None]
  - CONFUSIONAL STATE [None]
  - INTENTIONAL SELF-INJURY [None]
  - SLEEP DISORDER [None]
  - DIZZINESS [None]
